FAERS Safety Report 20634029 (Version 3)
Quarter: 2022Q4

REPORT INFORMATION
  Report Type: Report from Study
  Country: US (occurrence: US)
  Receive Date: 20220324
  Receipt Date: 20221013
  Transmission Date: 20230113
  Serious: No
  Sender: FDA-Public Use
  Company Number: US-BRISTOL-MYERS SQUIBB COMPANY-2022-010380

PATIENT
  Sex: Female
  Weight: 117.03 kg

DRUGS (1)
  1. ORENCIA [Suspect]
     Active Substance: ABATACEPT
     Indication: Rheumatoid arthritis
     Dosage: DOSE : 3;     FREQ : WEEKLY 125MG
     Route: 058
     Dates: start: 20220303

REACTIONS (7)
  - Fall [Unknown]
  - Joint injury [Unknown]
  - Limb injury [Unknown]
  - Movement disorder [Unknown]
  - Pain in extremity [Unknown]
  - Contusion [Unknown]
  - Balance disorder [Unknown]

NARRATIVE: CASE EVENT DATE: 20220316
